FAERS Safety Report 4367023-2 (Version None)
Quarter: 2004Q2

REPORT INFORMATION
  Report Type: 
  Country: None (occurrence: None)
  Receive Date: 20040527
  Receipt Date: 20040527
  Transmission Date: 20050107
  Serious: Yes (Hospitalization)
  Sender: FDA-Public Use
  Company Number: None

PATIENT
  Age: 10 Year
  Sex: Female
  Weight: 37 kg

DRUGS (3)
  1. LAMOTRIGINE [Suspect]
     Indication: PETIT MAL EPILEPSY
     Dosage: 25 MG QD
     Dates: start: 20040301, end: 20040312
  2. LAMOTRIGINE [Suspect]
     Indication: SIMPLE PARTIAL SEIZURES
     Dosage: 25 MG QD
     Dates: start: 20040301, end: 20040312
  3. DEPAKOTE [Concomitant]

REACTIONS (2)
  - STEVENS-JOHNSON SYNDROME [None]
  - TOXIC EPIDERMAL NECROLYSIS [None]
